FAERS Safety Report 25790848 (Version 1)
Quarter: 2025Q3

REPORT INFORMATION
  Report Type: Spontaneous
  Country: US (occurrence: None)
  Receive Date: 20250911
  Receipt Date: 20250911
  Transmission Date: 20251020
  Serious: Yes (Hospitalization)
  Sender: FDA-CTU
  Company Number: None

PATIENT
  Age: 62 Year
  Sex: Female
  Weight: 104.1 kg

DRUGS (4)
  1. FLUOROURACIL [Suspect]
     Active Substance: FLUOROURACIL
     Dates: start: 20250808
  2. CAMPTOSAR [Suspect]
     Active Substance: IRINOTECAN HYDROCHLORIDE
     Dates: start: 20250808
  3. LEUCOVORIN CALCIUM [Suspect]
     Active Substance: LEUCOVORIN CALCIUM
     Dates: start: 20250808
  4. OXALIPLATIN [Suspect]
     Active Substance: OXALIPLATIN

REACTIONS (11)
  - Fatigue [None]
  - Asthenia [None]
  - Gait disturbance [None]
  - Somnolence [None]
  - Weight decreased [None]
  - Hypophagia [None]
  - Hypokalaemia [None]
  - SARS-CoV-2 test positive [None]
  - Acute kidney injury [None]
  - Failure to thrive [None]
  - Malnutrition [None]

NARRATIVE: CASE EVENT DATE: 20250821
